FAERS Safety Report 4353654-2 (Version None)
Quarter: 2004Q2

REPORT INFORMATION
  Report Type: 
  Country: None (occurrence: None)
  Receive Date: 20040430
  Receipt Date: 20040420
  Transmission Date: 20050107
  Serious: Yes (Other)
  Sender: FDA-Public Use
  Company Number: 2004027041

PATIENT
  Age: 41 Year
  Sex: Male
  Weight: 90.7194 kg

DRUGS (13)
  1. NEURONTIN [Suspect]
     Indication: BACK PAIN
     Dosage: 900 (TID), ORAL
     Route: 048
     Dates: start: 20030911
  2. GLIMEPIRIDE [Concomitant]
  3. HYDROCODONE (HYDROCODONE) [Concomitant]
  4. BACLOFEN [Concomitant]
  5. METOPROLOL SUCCINATE [Concomitant]
  6. BUSPIRONE HCL [Concomitant]
  7. ZALEPLON (ZALEPLON) [Concomitant]
  8. ROFECOXIB [Concomitant]
  9. LISINOPRIL [Concomitant]
  10. RABEPRAZOLE SODIUM (RABEPRAZOLE SODIUM) [Concomitant]
  11. METFORMIN HCL [Concomitant]
  12. PRAVASTATIN SODIUM [Concomitant]
  13. TRAZODONE HCL [Concomitant]

REACTIONS (3)
  - DRUG INEFFECTIVE [None]
  - PHARMACEUTICAL PRODUCT COMPLAINT [None]
  - PRURITUS [None]
